FAERS Safety Report 8828194 (Version 2)
Quarter: 2013Q1

REPORT INFORMATION
  Report Type: Spontaneous
  Country: JP (occurrence: JP)
  Receive Date: 20121008
  Receipt Date: 20130122
  Transmission Date: 20140127
  Serious: No
  Sender: FDA-Public Use
  Company Number: PHHY2012JP042957

PATIENT
  Sex: Female

DRUGS (1)
  1. NEORAL [Suspect]
     Indication: APLASIA PURE RED CELL
     Dosage: 2.4 ML DAILY
     Route: 048
     Dates: start: 20120130

REACTIONS (1)
  - Hirsutism [Not Recovered/Not Resolved]
